FAERS Safety Report 8339197-X (Version None)
Quarter: 2012Q2

REPORT INFORMATION
  Report Type: 
  Country: None (occurrence: None)
  Receive Date: 20120502
  Receipt Date: 20120419
  Transmission Date: 20120825
  Serious: Yes (Death, Hospitalization)
  Sender: FDA-Public Use
  Company Number: KR-JNJFOC-20110407774

PATIENT
  Age: 64 Year
  Sex: Male
  Weight: 68.5 kg

DRUGS (26)
  1. AMLODIPINE BESYLATE AND OLMESARTAN MEDOXOMIL [Concomitant]
  2. BEECOM-HEXA (B-KOMPLEX) [Concomitant]
  3. SIGMART (NICORANDIL) [Concomitant]
  4. BISOPROLOL FUMARATE [Concomitant]
  5. JANUMET [Concomitant]
  6. HUMULIN R [Concomitant]
  7. PIPERACILLIN AND TAZOBACTAM [Concomitant]
  8. KANITRON (GRANISETRON) [Concomitant]
  9. KALITAKE (CALCIUM POLYSTYRENE SULFONATE) [Concomitant]
  10. DUPHALAC [Concomitant]
  11. DEXTROSE AND SODIUM CHLORIDE INJECTION (DEXTROSE AND SODIUM CHLORIDE I [Concomitant]
  12. CHLORPHENIRAMINE MALEATE [Concomitant]
  13. LASIX [Concomitant]
  14. FOLIC ACID [Concomitant]
  15. NITROGLYCERIN [Concomitant]
  16. SPORANOX [Concomitant]
  17. FLASINYL (METRONIDAZOLE) [Concomitant]
  18. TASPEN ER (PARACETAMOL) [Concomitant]
  19. LIDOCAIN (LIDOCAINE HYDROCHLORIDE) [Concomitant]
  20. MEGACE [Concomitant]
  21. DACOGEN [Suspect]
     Indication: MYELODYSPLASTIC SYNDROME
     Dosage: 20 MG/M2, IN 1 CYCLICAL, INTRAVENOUS
     Route: 042
     Dates: start: 20110323, end: 20110327
  22. DACOGEN [Suspect]
     Indication: MYELODYSPLASTIC SYNDROME
     Dosage: 20 MG/M2, IN 1 CYCLICAL, INTRAVENOUS
     Route: 042
     Dates: start: 20110613, end: 20110617
  23. DACOGEN [Suspect]
     Indication: MYELODYSPLASTIC SYNDROME
     Dosage: 20 MG/M2, IN 1 CYCLICAL, INTRAVENOUS
     Route: 042
     Dates: start: 20110502, end: 20110506
  24. VASTINAN (TRIMETAZIDINE HYDROCHLORIDE) [Concomitant]
  25. CITOPCIN (CIPROFLOXACIN HYDROCHLORIDE) [Concomitant]
  26. HIBITAN (CHLORHEXIDINE GLUCONATE) [Concomitant]

REACTIONS (6)
  - OEDEMA PERIPHERAL [None]
  - PANCYTOPENIA [None]
  - SEPSIS [None]
  - MYOCARDIAL ISCHAEMIA [None]
  - PYELONEPHRITIS [None]
  - CARDIAC FAILURE CONGESTIVE [None]
